FAERS Safety Report 8746161 (Version 2)
Quarter: 2012Q4

REPORT INFORMATION
  Report Type: 
  Country: US (occurrence: US)
  Receive Date: 20120827
  Receipt Date: 20120921
  Transmission Date: 20130627
  Serious: Yes (Other)
  Sender: FDA-Public Use
  Company Number: PHEH2012US014521

PATIENT
  Age: 81 None
  Sex: Female

DRUGS (11)
  1. TASIGNA [Suspect]
     Indication: CHRONIC MYELOID LEUKAEMIA
     Dosage: 300 mg, BID
     Route: 048
     Dates: start: 20120115
  2. AMLODIPINE [Concomitant]
  3. NADOLOL [Concomitant]
  4. NEXIUM [Concomitant]
  5. DIOVAN [Concomitant]
  6. HYDRALAZINE [Concomitant]
  7. LEVOXYL [Concomitant]
  8. ZETIA [Concomitant]
  9. LIPITOR [Concomitant]
  10. FOLTX [Concomitant]
  11. ESTRACE [Concomitant]

REACTIONS (4)
  - Chronic myeloid leukaemia [Not Recovered/Not Resolved]
  - Malignant neoplasm progression [Not Recovered/Not Resolved]
  - Headache [Unknown]
  - Myalgia [Recovering/Resolving]
